FAERS Safety Report 10362723 (Version 1)
Quarter: 2014Q3

REPORT INFORMATION
  Report Type: Spontaneous
  Country: NL (occurrence: NL)
  Receive Date: 20140805
  Receipt Date: 20140805
  Transmission Date: 20150326
  Serious: Yes (Death)
  Sender: FDA-Public Use
  Company Number: NL-TEVA-497598ISR

PATIENT
  Age: 65 Year
  Sex: Male

DRUGS (2)
  1. PROPRANOLOL [Suspect]
     Active Substance: PROPRANOLOL\PROPRANOLOL HYDROCHLORIDE
     Indication: PRODUCT USED FOR UNKNOWN INDICATION
     Dosage: 90 MILLIGRAM DAILY; THREE TIMES DAILY THREE PIECES
     Route: 048
     Dates: start: 20140708
  2. DONEPEZIL TABLET 5MG [Interacting]
     Active Substance: DONEPEZIL
     Indication: PRODUCT USED FOR UNKNOWN INDICATION
     Dosage: 5 MILLIGRAM DAILY; ONCE DAILY ONE PIECE
     Route: 048
     Dates: start: 20140708

REACTIONS (2)
  - Myocardial infarction [Fatal]
  - Drug interaction [Fatal]

NARRATIVE: CASE EVENT DATE: 20140715
